FAERS Safety Report 11812963 (Version 1)
Quarter: 2015Q4

REPORT INFORMATION
  Report Type: Spontaneous
  Country: US (occurrence: US)
  Receive Date: 20151209
  Receipt Date: 20151209
  Transmission Date: 20160305
  Serious: No
  Sender: FDA-Public Use
  Company Number: US-009507513-1511USA011133

PATIENT
  Sex: Male

DRUGS (1)
  1. DIPROLENE AF [Suspect]
     Active Substance: BETAMETHASONE DIPROPIONATE
     Indication: SKIN ADHESION
     Dosage: UNK
     Route: 061
     Dates: start: 201507

REACTIONS (3)
  - Rash macular [Unknown]
  - Drug administered to patient of inappropriate age [Unknown]
  - Skin adhesion [Not Recovered/Not Resolved]

NARRATIVE: CASE EVENT DATE: 2015
